FAERS Safety Report 10045957 (Version 1)
Quarter: 2014Q1

REPORT INFORMATION
  Report Type: Spontaneous
  Country: GR (occurrence: GR)
  Receive Date: 20140330
  Receipt Date: 20140330
  Transmission Date: 20141002
  Serious: Yes (Hospitalization)
  Sender: FDA-Public Use
  Company Number: GR-TEVA-471930ISR

PATIENT
  Age: 51 Year
  Sex: Female

DRUGS (4)
  1. MODIODAL [Suspect]
     Route: 048
  2. TYSABRI [Concomitant]
  3. NEUROTIN [Concomitant]
  4. SEROXAT [Concomitant]

REACTIONS (1)
  - Cerebrovascular accident [Recovered/Resolved]
